FAERS Safety Report 6402375-0 (Version None)
Quarter: 2009Q4

REPORT INFORMATION
  Report Type: 
  Country: None (occurrence: None)
  Receive Date: 20091013
  Receipt Date: 20090929
  Transmission Date: 20100525
  Serious: Yes (Other)
  Sender: FDA-Public Use
  Company Number: US-2009-00248

PATIENT
  Age: 67 Year
  Sex: Female

DRUGS (2)
  1. LISINOPRIL [Suspect]
     Dosage: ORAL
     Route: 048
     Dates: start: 20050101
  2. CITALOPRAM HYDROBROMIDE [Concomitant]

REACTIONS (1)
  - ADRENAL DISORDER [None]
